FAERS Safety Report 24280354 (Version 1)
Quarter: 2024Q3

REPORT INFORMATION
  Report Type: Spontaneous
  Country: US (occurrence: US)
  Receive Date: 20240904
  Receipt Date: 20240904
  Transmission Date: 20241017
  Serious: Yes (Life-Threatening)
  Sender: ASPIRO PHARMA
  Company Number: US-ASPIRO-ASP2024US02882

PATIENT
  Age: 25 Year
  Sex: Female
  Weight: 92 kg

DRUGS (6)
  1. LIDOCAINE [Suspect]
     Active Substance: LIDOCAINE
     Indication: Epidural anaesthesia
     Dosage: 300 MILLIGRAM (ADMINISTERED THROUGH THE EPIDURAL CATHETER IN THREE 5 ML DOSES OVER 8 MINUTES)
     Route: 008
  2. LIDOCAINE [Suspect]
     Active Substance: LIDOCAINE
     Indication: Spinal anaesthesia
  3. BUPIVACAINE [Suspect]
     Active Substance: BUPIVACAINE
     Indication: Spinal anaesthesia
     Dosage: 9 MILLIGRAM (MIXTURE OF 9.0 MG OF 0.75 PERCENT HYPERBARIC BUPIVACAINE)
     Route: 037
  4. BUPIVACAINE [Suspect]
     Active Substance: BUPIVACAINE
     Indication: Epidural anaesthesia
  5. FENTANYL [Suspect]
     Active Substance: FENTANYL\FENTANYL CITRATE
     Indication: Product used for unknown indication
     Dosage: 15 MCG
     Route: 037
  6. MORPHINE [Suspect]
     Active Substance: MORPHINE
     Indication: Product used for unknown indication
     Dosage: 0.2 MILLIGRAM (MIXTURE OF 0.2 MG PRESERVATIVE-FREE MORPHINE)
     Route: 037

REACTIONS (4)
  - Local anaesthetic systemic toxicity [Recovered/Resolved]
  - Overdose [Recovered/Resolved]
  - Dose calculation error [Unknown]
  - Maternal exposure during pregnancy [Unknown]
